FAERS Safety Report 17946789 (Version 1)
Quarter: 2020Q2

REPORT INFORMATION
  Report Type: Spontaneous
  Country: CH (occurrence: CH)
  Receive Date: 20200625
  Receipt Date: 20200625
  Transmission Date: 20200714
  Serious: Yes (Other)
  Sender: FDA-Public Use
  Company Number: CH-ALLERGAN-2024134US

PATIENT
  Sex: Female

DRUGS (3)
  1. FOSFOMYCIN TROMETHAMINE - BP [Suspect]
     Active Substance: FOSFOMYCIN TROMETHAMINE
     Indication: URINARY TRACT INFECTION
     Dosage: 3 G, SINGLE
     Route: 048
     Dates: start: 20200310, end: 20200310
  2. PIYELOSEPTYL [Suspect]
     Active Substance: NITROFURANTOIN
     Indication: URINARY TRACT INFECTION
     Dosage: 50 MG, TID
     Route: 048
     Dates: start: 20200310, end: 20200312
  3. CIPRASID [Suspect]
     Active Substance: CIPROFLOXACIN HYDROCHLORIDE
     Indication: URINARY TRACT INFECTION
     Dosage: 750 MG, BID
     Route: 048
     Dates: start: 20200310, end: 20200312

REACTIONS (2)
  - Abortion missed [Unknown]
  - Pregnancy [Unknown]
